FAERS Safety Report 17984759 (Version 1)
Quarter: 2020Q3

REPORT INFORMATION
  Report Type: Spontaneous
  Country: US (occurrence: US)
  Receive Date: 20200706
  Receipt Date: 20200706
  Transmission Date: 20201103
  Serious: No
  Sender: FDA-Public Use
  Company Number: US-PRINSTON PHARMACEUTICAL INC.-2020PRN00043

PATIENT
  Sex: Female

DRUGS (3)
  1. LENVIMA [Concomitant]
     Active Substance: LENVATINIB
     Dosage: 10 MG, EVERY 48 HOURS
     Route: 048
     Dates: start: 20190502
  2. LENVIMA [Concomitant]
     Active Substance: LENVATINIB
     Indication: RENAL CELL CARCINOMA
     Dosage: 8 MG, EVERY 48 HOURS
     Route: 048
     Dates: start: 20190502
  3. LISINOPRIL. [Suspect]
     Active Substance: LISINOPRIL
     Indication: HYPERTENSION
     Route: 048

REACTIONS (2)
  - Feeling cold [Recovered/Resolved]
  - Insomnia [Recovered/Resolved]
